FAERS Safety Report 9143657 (Version 1)
Quarter: 2013Q1

REPORT INFORMATION
  Report Type: Spontaneous
  Country: US (occurrence: US)
  Receive Date: 20130306
  Receipt Date: 20130306
  Transmission Date: 20140127
  Serious: No
  Sender: FDA-Public Use
  Company Number: US-009507513-1302USA013607

PATIENT
  Sex: Female

DRUGS (1)
  1. COSOPT PF [Suspect]
     Indication: GLAUCOMA
     Dosage: 1 DROP IN EACH EYE MORNING AND EVENING
     Route: 047
     Dates: start: 201210

REACTIONS (2)
  - Drug dose omission [Unknown]
  - Product quality issue [Unknown]
